FAERS Safety Report 10010619 (Version 1)
Quarter: 2014Q1

REPORT INFORMATION
  Report Type: Spontaneous
  Country: US (occurrence: None)
  Receive Date: 20140312
  Receipt Date: 20140312
  Transmission Date: 20141002
  Serious: Yes (Other)
  Sender: FDA-Public Use
  Company Number: None

PATIENT
  Age: 80 Year
  Sex: Female
  Weight: 70 kg

DRUGS (8)
  1. NEUTROGENA RAPID WRINKLE REPAIR NIGHT MOISTURIZER [Suspect]
     Indication: THERAPEUTIC SKIN CARE TOPICAL
     Dosage: 1 DAB ONC1X NIGHT, TOPICAL.
     Route: 061
  2. NEUTROGENA RAPID TONE REPAIR MOISTURIZER SPF30 [Suspect]
     Indication: THERAPEUTIC SKIN CARE TOPICAL
     Dosage: 1 DAB ONCECIN THE MORNING , TOPICAL.
     Route: 061
  3. DEPRESSION MEDICATION [Concomitant]
  4. MULTIVITAMIN [Suspect]
  5. GLUCOSAMINE [Concomitant]
  6. CITALOPRAM [Concomitant]
  7. NASONEX [Concomitant]
  8. ACT NASAL SUSPENSION [Concomitant]

REACTIONS (10)
  - Pruritus [None]
  - Burning sensation [None]
  - Pain [None]
  - Swelling face [None]
  - Rash [None]
  - Rash [None]
  - Dermatitis contact [None]
  - Lentigo [None]
  - Seborrhoeic keratosis [None]
  - Sweat gland tumour [None]
